FAERS Safety Report 9284466 (Version 1)
Quarter: 2013Q2

REPORT INFORMATION
  Report Type: Spontaneous
  Country: US (occurrence: US)
  Receive Date: 20130510
  Receipt Date: 20130510
  Transmission Date: 20140414
  Serious: Yes (Death)
  Sender: FDA-Public Use
  Company Number: CHPA2013US008079

PATIENT
  Age: 94 Year
  Sex: Female

DRUGS (1)
  1. THERAPEUTIC MINERAL ICE [Suspect]
     Indication: ARTHRITIS
     Dosage: UNK, UNK
     Route: 061

REACTIONS (1)
  - Myocardial infarction [Fatal]
